FAERS Safety Report 7994915-5 (Version None)
Quarter: 2011Q4

REPORT INFORMATION
  Report Type: 
  Country: None (occurrence: None)
  Receive Date: 20111220
  Receipt Date: 20111215
  Transmission Date: 20120403
  Serious: Yes (Life-Threatening)
  Sender: FDA-Public Use
  Company Number: JP-PFIZER INC-2008154604

PATIENT
  Age: 53 Year
  Sex: Female

DRUGS (4)
  1. SELBEX [Concomitant]
     Route: 048
  2. AZULFIDINE [Suspect]
     Indication: RHEUMATOID ARTHRITIS
     Dosage: 500 MG, 2X/DAY
     Route: 048
     Dates: start: 20050808, end: 20080922
  3. MIYARI BACTERIA [Concomitant]
     Indication: DIARRHOEA
     Dosage: 2 DF, 2X/DAY
     Route: 048
     Dates: start: 20080725, end: 20080901
  4. RHEUMATREX [Concomitant]
     Indication: RHEUMATOID ARTHRITIS
     Dosage: UNK
     Route: 048
     Dates: start: 20060807, end: 20080825

REACTIONS (1)
  - AUTOIMMUNE NEUTROPENIA [None]
